FAERS Safety Report 9630544 (Version 5)
Quarter: 2014Q4

REPORT INFORMATION
  Report Type: Spontaneous
  Country: GB (occurrence: GB)
  Receive Date: 20131018
  Receipt Date: 20141017
  Transmission Date: 20150529
  Serious: Yes (Hospitalization)
  Sender: FDA-Public Use
  Company Number: PHFR2013GB005832

PATIENT
  Sex: Male

DRUGS (3)
  1. CLOZARIL [Suspect]
     Active Substance: CLOZAPINE
     Dosage: 375 MG, DAILY
     Route: 048
     Dates: end: 20141003
  2. INSULIN [Concomitant]
     Active Substance: INSULIN NOS
     Indication: TYPE 1 DIABETES MELLITUS
     Route: 065
  3. CLOZARIL [Suspect]
     Active Substance: CLOZAPINE
     Indication: SCHIZOPHRENIA
     Dosage: 425 MG, DAILY
     Route: 048
     Dates: start: 20051111

REACTIONS (8)
  - Chest pain [Recovered/Resolved]
  - Pneumonia [Recovered/Resolved]
  - Circulatory collapse [Recovered/Resolved]
  - Urinary tract infection [Recovered/Resolved]
  - Myocardial infarction [Unknown]
  - Malaise [Recovering/Resolving]
  - Cardiac disorder [Recovered/Resolved]
  - Confusional state [Recovered/Resolved]
